FAERS Safety Report 13851735 (Version 2)
Quarter: 2017Q4

REPORT INFORMATION
  Report Type: Spontaneous
  Country: US (occurrence: US)
  Receive Date: 20170809
  Receipt Date: 20171009
  Transmission Date: 20180320
  Serious: Yes (Life-Threatening, Hospitalization, Other)
  Sender: FDA-Public Use
  Company Number: US-UNITED THERAPEUTICS-UNT-2017-011579

PATIENT
  Age: 49 Year
  Sex: Female
  Weight: 57.14 kg

DRUGS (3)
  1. ADCIRCA [Concomitant]
     Active Substance: TADALAFIL
     Indication: PRODUCT USED FOR UNKNOWN INDICATION
  2. LETAIRIS [Concomitant]
     Active Substance: AMBRISENTAN
     Indication: PRODUCT USED FOR UNKNOWN INDICATION
  3. REMODULIN [Suspect]
     Active Substance: TREPROSTINIL
     Indication: PULMONARY HYPERTENSION
     Dosage: 0.0345 ?G/KG, CONTINUING
     Route: 058
     Dates: start: 20130210, end: 2017

REACTIONS (7)
  - Headache [Unknown]
  - Neck injury [Unknown]
  - Migraine [Unknown]
  - Post lumbar puncture syndrome [Unknown]
  - Chest pain [Unknown]
  - Hepatic encephalopathy [Unknown]
  - Swelling face [Unknown]

NARRATIVE: CASE EVENT DATE: 2017
